FAERS Safety Report 10920925 (Version 1)
Quarter: 2015Q1

REPORT INFORMATION
  Report Type: Spontaneous
  Country: US (occurrence: US)
  Receive Date: 20150317
  Receipt Date: 20150317
  Transmission Date: 20150721
  Serious: No
  Sender: FDA-Public Use
  Company Number: US-TEVA-536428USA

PATIENT

DRUGS (2)
  1. DULOXETINE [Suspect]
     Active Substance: DULOXETINE
     Indication: FACIAL PAIN
     Route: 065
  2. DULOXETINE [Suspect]
     Active Substance: DULOXETINE
     Indication: TRIGEMINAL NERVE DISORDER

REACTIONS (9)
  - Feeling abnormal [Unknown]
  - Abdominal discomfort [Unknown]
  - Product substitution issue [Unknown]
  - Headache [Unknown]
  - Thinking abnormal [Unknown]
  - Somnolence [Unknown]
  - Facial pain [Unknown]
  - Sleep disorder [Unknown]
  - Dizziness [Unknown]
